FAERS Safety Report 19169666 (Version 1)
Quarter: 2021Q2

REPORT INFORMATION
  Report Type: Spontaneous
  Country: US (occurrence: US)
  Receive Date: 20210422
  Receipt Date: 20210422
  Transmission Date: 20210717
  Serious: No
  Sender: FDA-Public Use
  Company Number: US-ASTELLAS-2021US012042

PATIENT
  Age: 85 Year
  Sex: Female
  Weight: 43 kg

DRUGS (8)
  1. LEXISCAN [Suspect]
     Active Substance: REGADENOSON
     Indication: SCAN MYOCARDIAL PERFUSION
     Dosage: UNK UNK, UNKNOWN FREQ.
     Route: 065
     Dates: start: 201802, end: 201802
  2. LEXISCAN [Suspect]
     Active Substance: REGADENOSON
     Dosage: UNK, UNKNOWN FREQ. (INFUSED AT 10:22)
     Route: 065
     Dates: start: 20210331, end: 20210331
  3. LEXISCAN [Suspect]
     Active Substance: REGADENOSON
     Dosage: UNK, UNKNOWN FREQ. (INFUSED AT 10:22)
     Route: 065
     Dates: start: 20210331, end: 20210331
  4. LEXISCAN [Suspect]
     Active Substance: REGADENOSON
     Dosage: UNK, UNKNOWN FREQ. (INFUSED AT 10:22)
     Route: 065
     Dates: start: 20210331, end: 20210331
  5. LEXISCAN [Suspect]
     Active Substance: REGADENOSON
     Indication: SCAN MYOCARDIAL PERFUSION
     Dosage: UNK UNK, UNKNOWN FREQ.
     Route: 065
     Dates: start: 201802, end: 201802
  6. LEXISCAN [Suspect]
     Active Substance: REGADENOSON
     Indication: SCAN MYOCARDIAL PERFUSION
     Dosage: UNK UNK, UNKNOWN FREQ.
     Route: 065
     Dates: start: 201802, end: 201802
  7. LEXISCAN [Suspect]
     Active Substance: REGADENOSON
     Indication: SCAN MYOCARDIAL PERFUSION
     Dosage: UNK UNK, UNKNOWN FREQ.
     Route: 065
     Dates: start: 201802, end: 201802
  8. LEXISCAN [Suspect]
     Active Substance: REGADENOSON
     Dosage: UNK, UNKNOWN FREQ. (INFUSED AT 10:22)
     Route: 065
     Dates: start: 20210331, end: 20210331

REACTIONS (4)
  - Dyspnoea [Recovered/Resolved]
  - Incorrect product administration duration [Unknown]
  - Nausea [Recovered/Resolved]
  - Oropharyngeal discomfort [Recovered/Resolved]

NARRATIVE: CASE EVENT DATE: 20210331
